FAERS Safety Report 23737871 (Version 1)
Quarter: 2024Q2

REPORT INFORMATION
  Report Type: Spontaneous
  Country: US (occurrence: US)
  Receive Date: 20240412
  Receipt Date: 20240412
  Transmission Date: 20240716
  Serious: No
  Sender: FDA-Public Use
  Company Number: US-SANDOZ-SDZ2024US038697

PATIENT
  Sex: Female

DRUGS (2)
  1. ZARXIO [Suspect]
     Active Substance: FILGRASTIM-SNDZ
     Indication: Product used for unknown indication
     Dosage: 300 UG
     Route: 058
  2. ZARXIO [Suspect]
     Active Substance: FILGRASTIM-SNDZ
     Dosage: 480 UG
     Route: 058

REACTIONS (1)
  - Drug effect less than expected [Recovering/Resolving]
